FAERS Safety Report 22532628 (Version 1)
Quarter: 2023Q2

REPORT INFORMATION
  Report Type: Spontaneous
  Country: FR (occurrence: FR)
  Receive Date: 20230607
  Receipt Date: 20230607
  Transmission Date: 20230722
  Serious: Yes (Hospitalization)
  Sender: FDA-Public Use
  Company Number: None

PATIENT
  Age: 37 Year
  Sex: Male

DRUGS (8)
  1. OLANZAPINE [Suspect]
     Active Substance: OLANZAPINE
     Indication: Schizoaffective disorder
     Dosage: 5MG/JOUR PUIS AUGMENTATION ? 10MG/JR
     Route: 048
     Dates: start: 20200224, end: 20200314
  2. ANAFRANIL [Suspect]
     Active Substance: CLOMIPRAMINE HYDROCHLORIDE
     Indication: Schizoaffective disorder
     Dosage: 1 DF, QD
     Route: 048
     Dates: start: 20200305, end: 20200314
  3. PROZAC [Suspect]
     Active Substance: FLUOXETINE HYDROCHLORIDE
     Indication: Schizoaffective disorder
     Dosage: 3 DF, QD
     Route: 048
     Dates: end: 20200305
  4. TERALITHE [Suspect]
     Active Substance: LITHIUM CARBONATE
     Indication: Schizoaffective disorder
     Route: 048
     Dates: end: 20200314
  5. ABILIFY [Suspect]
     Active Substance: ARIPIPRAZOLE
     Indication: Schizoaffective disorder
     Dosage: UNK (20MG 2 FOIS PAR JOUR, PUIS DIMINU? ? 15MG 2 FOIS PAR JOUR)
     Route: 048
     Dates: end: 20200314
  6. ABILIFY [Suspect]
     Active Substance: ARIPIPRAZOLE
     Dosage: 20MG 2 FOIS PAR JOUR, PUIS DIMINU? ? 15MG 2 FOIS PAR JOUR
     Route: 048
     Dates: end: 20200314
  7. LAMICTAL [Concomitant]
     Active Substance: LAMOTRIGINE
     Indication: Schizoaffective disorder
     Dosage: 1 DF, QD
     Route: 048
     Dates: start: 20200223, end: 20200314
  8. VALIUM [Concomitant]
     Active Substance: DIAZEPAM
     Indication: Schizoaffective disorder
     Dosage: UNK (INCONNUE  )
     Route: 048
     Dates: start: 20200225, end: 20200314

REACTIONS (1)
  - Neuroleptic malignant syndrome [Recovered/Resolved]

NARRATIVE: CASE EVENT DATE: 20200313
